FAERS Safety Report 26046544 (Version 1)
Quarter: 2025Q4

REPORT INFORMATION
  Report Type: Spontaneous
  Country: US (occurrence: None)
  Receive Date: 20251113
  Receipt Date: 20251113
  Transmission Date: 20260117
  Serious: Yes (Life-Threatening)
  Sender: FDA-CTU
  Company Number: None

PATIENT
  Age: 7 Month
  Sex: Male
  Weight: 2.72 kg

DRUGS (2)
  1. LABETALOL [Suspect]
     Active Substance: LABETALOL
     Indication: Hypertension
  2. ALDOMET [Suspect]
     Active Substance: METHYLDOPA

REACTIONS (6)
  - Pregnancy [None]
  - Exposure via breast milk [None]
  - Maternal drugs affecting foetus [None]
  - Hypoperfusion [None]
  - Therapy non-responder [None]
  - Maternal exposure during pregnancy [None]

NARRATIVE: CASE EVENT DATE: 20021201
